FAERS Safety Report 5973259-7 (Version None)
Quarter: 2008Q4

REPORT INFORMATION
  Report Type: 
  Country: None (occurrence: None)
  Receive Date: 20081201
  Receipt Date: 20081119
  Transmission Date: 20090506
  Serious: Yes (Other)
  Sender: FDA-Public Use
  Company Number: US-JNJCH-2008055319

PATIENT
  Sex: Male

DRUGS (1)
  1. PURELL ORIGINAL [Suspect]
     Indication: ACCIDENTAL EXPOSURE
     Dosage: TEXT:UNSPECIFIED
     Route: 047

REACTIONS (2)
  - ACCIDENTAL EXPOSURE [None]
  - VISUAL IMPAIRMENT [None]
